FAERS Safety Report 4761489-1 (Version None)
Quarter: 2005Q3

REPORT INFORMATION
  Report Type: 
  Country: None (occurrence: None)
  Receive Date: 20050906
  Receipt Date: 20050902
  Transmission Date: 20060218
  Serious: Yes (Hospitalization, Other)
  Sender: FDA-Public Use
  Company Number: US-GLAXOSMITHKLINE-A0572887A

PATIENT
  Sex: Male
  Weight: 45.5 kg

DRUGS (4)
  1. LAMICTAL [Suspect]
     Indication: CONVULSION
     Route: 048
  2. TOPAMAX [Concomitant]
  3. VERSED [Concomitant]
  4. FENTANYL [Concomitant]

REACTIONS (5)
  - CONVULSION [None]
  - DRUG INEFFECTIVE [None]
  - NEAR DROWNING [None]
  - PANCREATITIS [None]
  - PNEUMONIA ASPIRATION [None]
